FAERS Safety Report 4323873-X (Version None)
Quarter: 2004Q1

REPORT INFORMATION
  Report Type: 
  Country: None (occurrence: None)
  Receive Date: 20040326
  Receipt Date: 20030811
  Transmission Date: 20041129
  Serious: No
  Sender: FDA-Public Use
  Company Number: US-GLAXOSMITHKLINE-A0420580A

PATIENT
  Age: 48 Year
  Sex: Female

DRUGS (7)
  1. ADVAIR DISKUS 100/50 [Suspect]
     Indication: ASTHMA
     Dosage: 1PUFF TWICE PER DAY
     Route: 055
     Dates: start: 20020901
  2. ASTELIN [Concomitant]
  3. LABETALOL HCL [Concomitant]
  4. PREVACID [Concomitant]
  5. CIMETIDINE HCL [Concomitant]
  6. PREMARIN [Concomitant]
  7. PROVENTIL [Concomitant]

REACTIONS (4)
  - DYSPNOEA [None]
  - FEELING HOT AND COLD [None]
  - HYPERHIDROSIS [None]
  - PHARMACEUTICAL PRODUCT COMPLAINT [None]
